FAERS Safety Report 18050273 (Version 1)
Quarter: 2020Q3

REPORT INFORMATION
  Report Type: Spontaneous
  Country: PL (occurrence: PL)
  Receive Date: 20200721
  Receipt Date: 20200721
  Transmission Date: 20201103
  Serious: Yes (Other)
  Sender: FDA-Public Use
  Company Number: PL-PFIZER INC-2020274258

PATIENT
  Age: 58 Year
  Weight: 75 kg

DRUGS (1)
  1. SUTENT [Suspect]
     Active Substance: SUNITINIB MALATE
     Dosage: 50 MG
     Route: 048

REACTIONS (37)
  - Weight decreased [Unknown]
  - Insomnia [Unknown]
  - Pneumothorax spontaneous [Unknown]
  - Sinus bradycardia [Unknown]
  - Conduction disorder [Unknown]
  - Muscle spasms [Unknown]
  - Hair colour changes [Unknown]
  - Musculoskeletal pain [Unknown]
  - Stomatitis [Unknown]
  - Anaemia [Unknown]
  - Neutropenia [Unknown]
  - Hyperglycaemia [Unknown]
  - Blood thyroid stimulating hormone decreased [Unknown]
  - Blood pressure increased [Unknown]
  - Skin exfoliation [Unknown]
  - Diarrhoea [Unknown]
  - Dry mouth [Unknown]
  - Tongue discomfort [Unknown]
  - Anorectal discomfort [Unknown]
  - Arthralgia [Unknown]
  - Weight increased [Unknown]
  - Aspartate aminotransferase increased [Unknown]
  - Lip ulceration [Unknown]
  - Decreased appetite [Unknown]
  - Rhinorrhoea [Unknown]
  - Taste disorder [Unknown]
  - Nausea [Unknown]
  - Alanine aminotransferase increased [Unknown]
  - Tearfulness [Unknown]
  - Hypothyroidism [Unknown]
  - Chronic kidney disease [Unknown]
  - Erythema [Unknown]
  - Asthenia [Unknown]
  - Dry skin [Unknown]
  - Oral pain [Unknown]
  - Dyspepsia [Unknown]
  - Upper respiratory tract infection bacterial [Unknown]
